FAERS Safety Report 6012550-5 (Version None)
Quarter: 2008Q4

REPORT INFORMATION
  Report Type: 
  Country: None (occurrence: None)
  Receive Date: 20081218
  Receipt Date: 20081211
  Transmission Date: 20090506
  Serious: Yes (Death)
  Sender: FDA-Public Use
  Company Number: ZW-B.I. PHARMACEUTICALS,INC./RIDGEFIELD-2008-DE-07649GD

PATIENT

DRUGS (2)
  1. TRIOMUNE [Suspect]
     Indication: HIV INFECTION
     Dosage: 300MG 3TC, 60MG (80MG) D4T AND 400MG NVP FOR PATIENTS WITH BODY WEIGHT {60KG (}60KG)
     Route: 048
  2. TRIOMUNE [Suspect]
     Dosage: 300MG 3TC, 60MG (80MG) D4T AND 200MG NVP FOR PATIENTS WITH BODY WEIGHT {60KG (}60KG)
     Route: 048

REACTIONS (2)
  - IMMUNE RECONSTITUTION SYNDROME [None]
  - TUBERCULOSIS [None]
